FAERS Safety Report 5468421-6 (Version None)
Quarter: 2007Q3

REPORT INFORMATION
  Report Type: 
  Country: None (occurrence: None)
  Receive Date: 20070926
  Receipt Date: 20070919
  Transmission Date: 20080115
  Serious: Yes (Other)
  Sender: FDA-Public Use
  Company Number: PHBS2007JP15086

PATIENT
  Age: 55 Year
  Sex: Female

DRUGS (9)
  1. NEORAL [Suspect]
     Indication: MYASTHENIA GRAVIS
     Dosage: 200 MG/D
     Route: 048
     Dates: start: 20070104
  2. PREDNISOLONE [Concomitant]
     Dosage: 1 MG/D
     Route: 048
     Dates: start: 20000101
  3. ALFAROL [Concomitant]
     Dosage: 1 UG/D
     Route: 048
  4. AMLODIPINE [Concomitant]
     Dosage: 5 MG/D
     Route: 048
  5. CANDESARTAN CILEXETIL [Concomitant]
     Dosage: 8 MG/D
     Route: 048
  6. FAMOTIDINE [Concomitant]
     Dosage: 10 MG/D
     Route: 048
  7. SELBEX [Concomitant]
     Dosage: 150 MG/D
     Route: 048
  8. NOVOLIN N [Concomitant]
     Route: 042
  9. NOVOLIN R [Concomitant]
     Route: 042

REACTIONS (2)
  - DIABETIC RETINOPATHY [None]
  - GLYCOSYLATED HAEMOGLOBIN INCREASED [None]
